FAERS Safety Report 5770162-2 (Version None)
Quarter: 2008Q2

REPORT INFORMATION
  Report Type: 
  Country: None (occurrence: None)
  Receive Date: 20080613
  Receipt Date: 20080422
  Transmission Date: 20081010
  Serious: No
  Sender: FDA-Public Use
  Company Number: US-ABBOTT-08P-163-0448618-00

PATIENT
  Sex: Female
  Weight: 49.486 kg

DRUGS (11)
  1. HUMIRA [Suspect]
     Indication: RHEUMATOID ARTHRITIS
     Route: 058
     Dates: end: 20060401
  2. HUMIRA [Suspect]
     Dates: start: 20060401, end: 20070401
  3. HUMIRA [Suspect]
     Indication: RHEUMATOID ARTHRITIS
     Route: 058
     Dates: start: 20070401, end: 20080401
  4. HUMIRA [Suspect]
     Dates: start: 20080401
  5. METHOTREXATE [Concomitant]
     Indication: RHEUMATOID ARTHRITIS
     Route: 048
  6. LISINOPRIL [Concomitant]
     Indication: HYPERTENSION
     Route: 048
  7. ATENOLOL [Concomitant]
     Indication: HYPERTENSION
     Route: 048
  8. LEVOTHYROXINE SODIUM [Concomitant]
     Indication: HYPOTHYROIDISM
     Route: 048
  9. ESTRADIOL [Concomitant]
     Indication: HYSTERECTOMY
     Route: 048
  10. TRAZODONE HCL [Concomitant]
     Indication: SLEEP DISORDER THERAPY
     Route: 048
  11. TRAMADOL HCL [Concomitant]
     Indication: PAIN
     Route: 048

REACTIONS (5)
  - JOINT SWELLING [None]
  - LYMPHOCYTE COUNT INCREASED [None]
  - PAIN [None]
  - PNEUMONIA [None]
  - WHITE BLOOD CELL COUNT DECREASED [None]
